FAERS Safety Report 12672445 (Version 1)
Quarter: 2016Q3

REPORT INFORMATION
  Report Type: Spontaneous
  Country: US (occurrence: US)
  Receive Date: 20160822
  Receipt Date: 20160822
  Transmission Date: 20161109
  Serious: No
  Sender: FDA-Public Use
  Company Number: US-JNJFOC-20160705555

PATIENT
  Sex: Female
  Weight: 48.99 kg

DRUGS (2)
  1. MENS ROGAINE EXTRA STRENGTH [Suspect]
     Active Substance: MINOXIDIL
     Route: 061
  2. MENS ROGAINE EXTRA STRENGTH [Suspect]
     Active Substance: MINOXIDIL
     Indication: ALOPECIA
     Dosage: FULL CAP
     Route: 061
     Dates: start: 20160610, end: 20160630

REACTIONS (4)
  - Off label use [Recovering/Resolving]
  - Alopecia [Recovering/Resolving]
  - Product use issue [Recovering/Resolving]
  - Drug effect decreased [Unknown]
